FAERS Safety Report 7033882-8 (Version None)
Quarter: 2010Q4

REPORT INFORMATION
  Report Type: 
  Country: None (occurrence: None)
  Receive Date: 20101007
  Receipt Date: 20100930
  Transmission Date: 20110411
  Serious: Yes (Other)
  Sender: FDA-Public Use
  Company Number: US-AMGEN-KDL442250

PATIENT
  Sex: Female
  Weight: 45.4 kg

DRUGS (6)
  1. PROCRIT [Suspect]
     Indication: ANAEMIA
     Route: 058
     Dates: start: 20100825, end: 20100915
  2. PRILOSEC [Concomitant]
     Route: 048
     Dates: start: 20070101
  3. ATENOLOL [Concomitant]
     Route: 048
     Dates: start: 20091101
  4. ZETIA [Concomitant]
     Route: 048
     Dates: start: 20080101
  5. NORVASC [Concomitant]
     Route: 048
     Dates: start: 20091101
  6. LIPITOR [Concomitant]
     Route: 048
     Dates: start: 20070101

REACTIONS (5)
  - HYPOAESTHESIA [None]
  - MOBILITY DECREASED [None]
  - MUSCULAR WEAKNESS [None]
  - TRANSIENT ISCHAEMIC ATTACK [None]
  - VIITH NERVE PARALYSIS [None]
